FAERS Safety Report 7469323-6 (Version None)
Quarter: 2011Q2

REPORT INFORMATION
  Report Type: 
  Country: None (occurrence: None)
  Receive Date: 20110510
  Receipt Date: 20110503
  Transmission Date: 20111010
  Serious: Yes (Other)
  Sender: FDA-Public Use
  Company Number: US-JNJFOC-20110305252

PATIENT
  Sex: Male
  Weight: 86.64 kg

DRUGS (5)
  1. INVEGA SUSTENNA [Suspect]
     Route: 030
  2. DEPAKOTE ER [Suspect]
     Indication: MOOD SWINGS
  3. INVEGA SUSTENNA [Suspect]
     Route: 030
  4. DEPAKOTE ER [Suspect]
     Indication: DRUG THERAPY
  5. INVEGA SUSTENNA [Suspect]
     Indication: PSYCHOTIC DISORDER
     Route: 030

REACTIONS (2)
  - AGRANULOCYTOSIS [None]
  - PRODUCT QUALITY ISSUE [None]
